FAERS Safety Report 9531270 (Version 2)
Quarter: 2013Q4

REPORT INFORMATION
  Report Type: Spontaneous
  Country: CA (occurrence: CA)
  Receive Date: 20130918
  Receipt Date: 20131230
  Transmission Date: 20140711
  Serious: Yes (Hospitalization)
  Sender: FDA-Public Use
  Company Number: CA-BAYER-2013-110473

PATIENT
  Age: 51 Year
  Sex: Male
  Weight: 108 kg

DRUGS (2)
  1. AVELOX [Suspect]
     Dosage: ONCE
     Route: 065
  2. REMICADE [Suspect]
     Indication: PSORIASIS
     Dosage: 600 MG, 1 EVERY 8 WEEK(S)
     Route: 042
     Dates: start: 20120803

REACTIONS (2)
  - Sinusitis [Unknown]
  - Toxicity to various agents [Unknown]
